FAERS Safety Report 7320664-2 (Version None)
Quarter: 2011Q1

REPORT INFORMATION
  Report Type: 
  Country: None (occurrence: None)
  Receive Date: 20110223
  Receipt Date: 20110223
  Transmission Date: 20110831
  Serious: Yes (Hospitalization)
  Sender: FDA-Public Use
  Company Number: None

PATIENT
  Age: 78 Year
  Sex: Male
  Weight: 53.6 kg

DRUGS (1)
  1. PRADAXA [Suspect]
     Dosage: 150MG BID PO
     Route: 048
     Dates: start: 20110201, end: 20110212

REACTIONS (4)
  - DIZZINESS [None]
  - ASTHENIA [None]
  - ANAEMIA [None]
  - DYSSTASIA [None]
